FAERS Safety Report 25511341 (Version 1)
Quarter: 2025Q3

REPORT INFORMATION
  Report Type: Spontaneous
  Country: US (occurrence: US)
  Receive Date: 20250703
  Receipt Date: 20250703
  Transmission Date: 20251021
  Serious: No
  Sender: RADIUS PHARM
  Company Number: US-RADIUS HEALTH INC.-2024US006622

PATIENT
  Sex: Female

DRUGS (1)
  1. TYMLOS [Suspect]
     Active Substance: ABALOPARATIDE
     Indication: Senile osteoporosis
     Route: 058
     Dates: start: 202407

REACTIONS (7)
  - Insomnia [Unknown]
  - Head discomfort [Unknown]
  - Muscle spasms [Recovered/Resolved]
  - Back pain [Unknown]
  - Fatigue [Unknown]
  - Heart rate increased [Unknown]
  - Constipation [Unknown]
